FAERS Safety Report 15352862 (Version 1)
Quarter: 2018Q3

REPORT INFORMATION
  Report Type: Spontaneous
  Country: US (occurrence: US)
  Receive Date: 20180905
  Receipt Date: 20180905
  Transmission Date: 20181010
  Serious: Yes (Hospitalization)
  Sender: FDA-Public Use
  Company Number: US-MYLANLABS-2018M1065181

PATIENT
  Age: 6 Decade
  Sex: Female

DRUGS (1)
  1. CIDOFOVIR. [Suspect]
     Active Substance: CIDOFOVIR
     Indication: CYTOMEGALOVIRUS VIRAEMIA
     Route: 042

REACTIONS (5)
  - Uveitis [Recovering/Resolving]
  - Choroidal effusion [Recovered/Resolved]
  - Hypotony of eye [Recovered/Resolved]
  - Cataract subcapsular [Unknown]
  - Acute kidney injury [Unknown]
